FAERS Safety Report 9352618 (Version 2)
Quarter: 2014Q1

REPORT INFORMATION
  Report Type: Spontaneous
  Country: US (occurrence: US)
  Receive Date: 20130618
  Receipt Date: 20140318
  Transmission Date: 20141002
  Serious: Yes (Hospitalization, Other)
  Sender: FDA-Public Use
  Company Number: US-AMGEN-USASP2013042200

PATIENT
  Age: 41 Year
  Sex: Female

DRUGS (1)
  1. ENBREL [Suspect]
     Indication: RHEUMATOID ARTHRITIS
     Dosage: 50 MG, QWK
     Route: 065
     Dates: start: 19991101

REACTIONS (11)
  - Intervertebral disc protrusion [Recovered/Resolved]
  - Multiple fractures [Recovered/Resolved]
  - Spina bifida [Recovered/Resolved]
  - Osteogenesis imperfecta [Not Recovered/Not Resolved]
  - Fall [Recovered/Resolved]
  - Back disorder [Recovered/Resolved]
  - Back pain [Not Recovered/Not Resolved]
  - Arthralgia [Not Recovered/Not Resolved]
  - Sciatica [Not Recovered/Not Resolved]
  - Device dislocation [Not Recovered/Not Resolved]
  - Nerve compression [Not Recovered/Not Resolved]
